FAERS Safety Report 22335792 (Version 6)
Quarter: 2024Q2

REPORT INFORMATION
  Report Type: Report from Study
  Country: US (occurrence: US)
  Receive Date: 20230518
  Receipt Date: 20240522
  Transmission Date: 20240716
  Serious: Yes (Hospitalization, Other)
  Sender: FDA-Public Use
  Company Number: US-BIOGEN-2023BI01205765

PATIENT
  Sex: Female

DRUGS (3)
  1. TYSABRI [Suspect]
     Active Substance: NATALIZUMAB
     Indication: Multiple sclerosis
     Route: 050
     Dates: start: 20101019, end: 20231031
  2. TYSABRI [Suspect]
     Active Substance: NATALIZUMAB
     Route: 050
     Dates: start: 2021, end: 202310
  3. TYSABRI [Suspect]
     Active Substance: NATALIZUMAB
     Route: 050
     Dates: end: 20231223

REACTIONS (14)
  - Gastric varices [Recovered/Resolved]
  - Internal haemorrhage [Unknown]
  - Anaemia [Recovered/Resolved]
  - Platelet count abnormal [Not Recovered/Not Resolved]
  - Hepatic cirrhosis [Unknown]
  - Uraemic encephalopathy [Unknown]
  - Portal hypertension [Unknown]
  - Intracranial aneurysm [Unknown]
  - General physical health deterioration [Unknown]
  - Electric shock sensation [Not Recovered/Not Resolved]
  - Skin lesion [Not Recovered/Not Resolved]
  - Abdominal hernia [Recovered/Resolved]
  - Memory impairment [Unknown]
  - Splenomegaly [Unknown]

NARRATIVE: CASE EVENT DATE: 20230101
